FAERS Safety Report 6413793-9 (Version None)
Quarter: 2009Q4

REPORT INFORMATION
  Report Type: 
  Country: None (occurrence: None)
  Receive Date: 20091026
  Receipt Date: 20090923
  Transmission Date: 20100525
  Serious: No
  Sender: FDA-Public Use
  Company Number: US-BAYER-200933946NA

PATIENT
  Sex: Male

DRUGS (1)
  1. CIPRO [Suspect]
     Indication: DIVERTICULITIS
     Route: 042

REACTIONS (1)
  - ARTHROPATHY [None]
